FAERS Safety Report 4279617-3 (Version None)
Quarter: 2004Q1

REPORT INFORMATION
  Report Type: 
  Country: None (occurrence: None)
  Receive Date: 20040123
  Receipt Date: 20040114
  Transmission Date: 20041129
  Serious: Yes (Hospitalization)
  Sender: FDA-Public Use
  Company Number: US-SHR-03-015285

PATIENT
  Age: 52 Year
  Sex: Female
  Weight: 77.1 kg

DRUGS (3)
  1. BETASERON [Suspect]
     Indication: MULTIPLE SCLEROSIS
     Dosage: 8 MIU, EVERY 2D, SUBCUTANEOUS
     Route: 058
     Dates: start: 19950101
  2. MAXZIDE [Concomitant]
  3. LIPITOR [Concomitant]

REACTIONS (1)
  - BREAST CANCER [None]
